FAERS Safety Report 6491306-3 (Version None)
Quarter: 2009Q4

REPORT INFORMATION
  Report Type: 
  Country: None (occurrence: None)
  Receive Date: 20091207
  Receipt Date: 20091120
  Transmission Date: 20100525
  Serious: Yes (Hospitalization)
  Sender: FDA-Public Use
  Company Number: 2009AL007404

PATIENT
  Age: 75 Year
  Sex: Male

DRUGS (9)
  1. CARVEDILOL [Suspect]
     Indication: SUPRAVENTRICULAR TACHYCARDIA
     Dosage: 6.25 MG;QD
  2. AMLODIPINE BESYLATE [Suspect]
     Indication: SUPRAVENTRICULAR TACHYCARDIA
     Dosage: 5MG,QD
     Dates: end: 20050401
  3. FUROSEMIDE [Concomitant]
  4. ALLOPURINOL [Concomitant]
  5. ATORVASTATIN CALCIUM [Concomitant]
  6. CILAZAPRIL [Concomitant]
  7. ACETYLSALICYLIC ACID SRT [Concomitant]
  8. EPOGEN [Concomitant]
  9. AMIODARONE [Concomitant]

REACTIONS (14)
  - BLOOD CHOLESTEROL INCREASED [None]
  - BLOOD PRESSURE INCREASED [None]
  - ELECTROCARDIOGRAM QRS COMPLEX SHORTENED [None]
  - HAEMODIALYSIS [None]
  - HAEMOGLOBIN DECREASED [None]
  - LEFT ATRIAL DILATATION [None]
  - MITRAL VALVE INCOMPETENCE [None]
  - NODAL RHYTHM [None]
  - PALPITATIONS [None]
  - RENAL FAILURE CHRONIC [None]
  - RENAL IMPAIRMENT [None]
  - SINUS BRADYCARDIA [None]
  - TACHYCARDIA [None]
  - TRICUSPID VALVE INCOMPETENCE [None]
